FAERS Safety Report 21945465 (Version 1)
Quarter: 2023Q1

REPORT INFORMATION
  Report Type: Spontaneous
  Country: US (occurrence: None)
  Receive Date: 20230201
  Receipt Date: 20230201
  Transmission Date: 20230417
  Serious: No
  Sender: FDA-Public Use
  Company Number: None

PATIENT
  Age: 48 Year
  Sex: Male
  Weight: 74.84 kg

DRUGS (1)
  1. SKYRIZI [Suspect]
     Active Substance: RISANKIZUMAB-RZAA
     Indication: Psoriasis
     Dosage: INJECT 150MG (1 PEN ) SUBCUTANEOUSLY  AT WEEK 0 AND WEEK 4 AS DIRECTED
     Route: 058
     Dates: start: 202207

REACTIONS (1)
  - Sinusitis [None]
